FAERS Safety Report 24278132 (Version 2)
Quarter: 2025Q2

REPORT INFORMATION
  Report Type: Spontaneous
  Country: US (occurrence: None)
  Receive Date: 20240903
  Receipt Date: 20250509
  Transmission Date: 20250717
  Serious: No
  Sender: INCYTE
  Company Number: US-INCYTE CORPORATION-2024IN008825

PATIENT
  Age: 64 Year

DRUGS (3)
  1. JAKAFI [Suspect]
     Active Substance: RUXOLITINIB
     Indication: Myelofibrosis
     Dosage: 5 MILLIGRAM, BID
  2. JAKAFI [Suspect]
     Active Substance: RUXOLITINIB
     Dosage: 5 MILLIGRAM, QD (15MG: 5MG, 10MG)
  3. JAKAFI [Suspect]
     Active Substance: RUXOLITINIB
     Dosage: 10 MILLIGRAM, QD (15MG: 5MG, 10MG)

REACTIONS (4)
  - Feeling abnormal [Unknown]
  - Abdominal discomfort [Unknown]
  - Oropharyngeal pain [Unknown]
  - Fatigue [Unknown]
